FAERS Safety Report 14430362 (Version 1)
Quarter: 2018Q1

REPORT INFORMATION
  Report Type: Spontaneous
  Country: US (occurrence: US)
  Receive Date: 20180123
  Receipt Date: 20180123
  Transmission Date: 20180509
  Serious: Yes (Disabling)
  Sender: FDA-Public Use
  Company Number: None

PATIENT
  Sex: Female

DRUGS (2)
  1. TRIAMINICLONE [Suspect]
     Active Substance: TRIAMCINOLONE
     Indication: ECZEMA
     Route: 061
  2. HYDROCORTISONE CREAM [Suspect]
     Active Substance: HYDROCORTISONE
     Indication: ECZEMA
     Route: 061

REACTIONS (7)
  - Skin exfoliation [None]
  - Pruritus generalised [None]
  - Pain of skin [None]
  - Wound secretion [None]
  - Flushing [None]
  - Lymphadenopathy [None]
  - Skin odour abnormal [None]

NARRATIVE: CASE EVENT DATE: 20150915
